FAERS Safety Report 8349353-2 (Version None)
Quarter: 2012Q2

REPORT INFORMATION
  Report Type: 
  Country: None (occurrence: None)
  Receive Date: 20120510
  Receipt Date: 20120502
  Transmission Date: 20120825
  Serious: Yes (Hospitalization)
  Sender: FDA-Public Use
  Company Number: US-US-EMD SERONO, INC.-7093694

PATIENT
  Sex: Male
  Weight: 75 kg

DRUGS (4)
  1. PROPRANOLOL [Concomitant]
     Indication: TREMOR
     Dates: end: 20110701
  2. REBIF [Suspect]
     Indication: RELAPSING-REMITTING MULTIPLE SCLEROSIS
     Route: 058
     Dates: start: 20030502
  3. ASPIRIN [Concomitant]
     Indication: ANGIOPATHY
     Route: 048
     Dates: start: 20080204
  4. PLAVIX [Concomitant]
     Dates: start: 20110705

REACTIONS (2)
  - BALANCE DISORDER [None]
  - ACUTE MYOCARDIAL INFARCTION [None]
